FAERS Safety Report 9664992 (Version 1)
Quarter: 2013Q4

REPORT INFORMATION
  Report Type: Report from Study
  Country: US (occurrence: US)
  Receive Date: 20131101
  Receipt Date: 20131101
  Transmission Date: 20140711
  Serious: Yes (Hospitalization, Other)
  Sender: FDA-Public Use
  Company Number: US-ABBVIE-13P-163-1162692-00

PATIENT
  Age: 30 Year
  Sex: Male
  Weight: 88.53 kg

DRUGS (5)
  1. HUMIRA [Suspect]
     Indication: CROHN^S DISEASE
     Dates: start: 20121204, end: 201306
  2. HUMIRA [Suspect]
  3. ZYRTEC [Concomitant]
     Indication: HYPERSENSITIVITY
     Dosage: ONLY NEEDS IT EVERY 3 OR 4 WEEKS
  4. PAXIL [Concomitant]
     Indication: ANXIETY
  5. PAXIL [Concomitant]

REACTIONS (11)
  - Loss of consciousness [Not Recovered/Not Resolved]
  - Peroneal nerve palsy [Unknown]
  - Road traffic accident [Not Recovered/Not Resolved]
  - Limb injury [Not Recovered/Not Resolved]
  - Nerve injury [Not Recovered/Not Resolved]
  - Spinal fracture [Not Recovered/Not Resolved]
  - Cervical vertebral fracture [Not Recovered/Not Resolved]
  - Crohn^s disease [Recovered/Resolved]
  - Ligament rupture [Unknown]
  - Pain in extremity [Unknown]
  - Rib fracture [Not Recovered/Not Resolved]
